FAERS Safety Report 10705974 (Version 1)
Quarter: 2015Q1

REPORT INFORMATION
  Report Type: Spontaneous
  Country: CA (occurrence: CA)
  Receive Date: 20150113
  Receipt Date: 20150113
  Transmission Date: 20150721
  Serious: Yes (Other)
  Sender: FDA-Public Use
  Company Number: CA-ROCHE-1520087

PATIENT
  Age: 65 Year
  Sex: Male

DRUGS (18)
  1. DIPHENHYDRAMINE HYDROCHLORIDE. [Concomitant]
     Active Substance: DIPHENHYDRAMINE HYDROCHLORIDE
     Route: 065
  2. ISDN (ISOSORBIDE DINITRATE) [Concomitant]
     Active Substance: ISOSORBIDE DINITRATE
     Route: 065
  3. VITAMIN B3 [Concomitant]
     Active Substance: NIACIN
     Route: 065
  4. RITUXAN [Suspect]
     Active Substance: RITUXIMAB
     Indication: PRODUCT USED FOR UNKNOWN INDICATION
     Route: 042
  5. NEXIUM [Concomitant]
     Active Substance: ESOMEPRAZOLE MAGNESIUM
     Route: 065
  6. CRESTOR [Concomitant]
     Active Substance: ROSUVASTATIN CALCIUM
     Route: 065
  7. SITAGLIPTIN PHOSPHATE [Concomitant]
     Active Substance: SITAGLIPTIN PHOSPHATE
  8. RITUXAN [Suspect]
     Active Substance: RITUXIMAB
     Route: 042
  9. LYRICA [Concomitant]
     Active Substance: PREGABALIN
     Route: 065
  10. ACETAMINOPHEN. [Concomitant]
     Active Substance: ACETAMINOPHEN
     Route: 065
  11. METFORMIN HYDROCHLORIDE. [Concomitant]
     Active Substance: METFORMIN HYDROCHLORIDE
     Route: 065
  12. METHYLPREDNISOLONE. [Concomitant]
     Active Substance: METHYLPREDNISOLONE
  13. PLAQUENIL [Concomitant]
     Active Substance: HYDROXYCHLOROQUINE SULFATE
     Route: 065
  14. AMLODIPINE BESILATE [Suspect]
     Active Substance: AMLODIPINE BESYLATE
     Indication: PRODUCT USED FOR UNKNOWN INDICATION
     Route: 065
  15. ASPIRIN. [Concomitant]
     Active Substance: ASPIRIN
     Route: 065
  16. EZETROL [Concomitant]
     Active Substance: EZETIMIBE
     Route: 065
  17. RAMIPRIL. [Concomitant]
     Active Substance: RAMIPRIL
     Route: 065
  18. VITAMIN C [Concomitant]
     Active Substance: ASCORBIC ACID
     Route: 065

REACTIONS (4)
  - Local swelling [Not Recovered/Not Resolved]
  - Hypotension [Not Recovered/Not Resolved]
  - Joint swelling [Not Recovered/Not Resolved]
  - Pain in extremity [Not Recovered/Not Resolved]
